FAERS Safety Report 18888238 (Version 2)
Quarter: 2021Q1

REPORT INFORMATION
  Report Type: Report from Study
  Country: US (occurrence: US)
  Receive Date: 20210212
  Receipt Date: 20210216
  Transmission Date: 20210420
  Serious: Yes (Congenital Anomaly, Other)
  Sender: FDA-Public Use
  Company Number: US-TEVA-2021-US-1878567

PATIENT
  Sex: Female
  Weight: 2.86 kg

DRUGS (4)
  1. TENOFOVIR DISOPROXIL FUMARATE+EMTRICITABINE [Suspect]
     Active Substance: EMTRICITABINE\TENOFOVIR DISOPROXIL FUMARATE
     Indication: HIV INFECTION
     Dosage: TAB/CAPS DAILY DOSE
     Route: 064
  2. RITONAVIR. [Suspect]
     Active Substance: RITONAVIR
     Indication: HIV INFECTION
     Dosage: TAB/CAPS DAILY DOSE
     Route: 064
  3. TIVICAY [Suspect]
     Active Substance: DOLUTEGRAVIR SODIUM
     Dosage: TAB/CAPS DAILY DOSE
     Route: 064
     Dates: end: 20170920
  4. REYATAZ [Suspect]
     Active Substance: ATAZANAVIR SULFATE
     Dosage: TAB/CAPS DAILY DOSE
     Route: 064

REACTIONS (6)
  - Foetal exposure during pregnancy [Unknown]
  - Cerebral ventricle dilatation [Unknown]
  - Chromosomal deletion [Unknown]
  - Macrocephaly [Unknown]
  - Encephalomalacia [Unknown]
  - Hydrocephalus [Unknown]
